FAERS Safety Report 5631707-6 (Version None)
Quarter: 2008Q1

REPORT INFORMATION
  Report Type: 
  Country: None (occurrence: None)
  Receive Date: 20080220
  Receipt Date: 20080213
  Transmission Date: 20080703
  Serious: Yes (Other)
  Sender: FDA-Public Use
  Company Number: AU-JNJFOC-20080203039

PATIENT
  Age: 54 Year
  Sex: Male

DRUGS (9)
  1. RISPERDAL CONSTA [Suspect]
     Indication: DRUG USE FOR UNKNOWN INDICATION
     Route: 030
  2. RISPERDAL [Suspect]
     Indication: AFFECTIVE DISORDER
     Route: 048
  3. OLANZAPINE [Suspect]
     Indication: AFFECTIVE DISORDER
     Route: 048
  4. NEXIUM [Concomitant]
  5. NORFLOXACIN [Concomitant]
     Indication: PROPHYLAXIS
  6. PHYTOMENADIONE [Concomitant]
  7. PROPRANOLOL HYDROCHLORIDE [Concomitant]
  8. SPIRONOLACTONE [Concomitant]
  9. THIAMINE [Concomitant]

REACTIONS (1)
  - AGRANULOCYTOSIS [None]
